FAERS Safety Report 16772099 (Version 2)
Quarter: 2024Q4

REPORT INFORMATION
  Report Type: Spontaneous
  Country: GB (occurrence: GB)
  Receive Date: 20190904
  Receipt Date: 20241218
  Transmission Date: 20250115
  Serious: Yes (Death, Other)
  Sender: BIOVITRUM
  Company Number: GB-BIOVITRUM-2019GB2831

PATIENT

DRUGS (1)
  1. KINERET [Suspect]
     Active Substance: ANAKINRA
     Indication: Autoinflammatory disease

REACTIONS (3)
  - Haemophagocytic lymphohistiocytosis [Fatal]
  - Drug ineffective [Unknown]
  - Off label use [Unknown]
